FAERS Safety Report 6920843-X (Version None)
Quarter: 2010Q3

REPORT INFORMATION
  Report Type: 
  Country: None (occurrence: None)
  Receive Date: 20100804
  Receipt Date: 20100719
  Transmission Date: 20110219
  Serious: Yes (Other)
  Sender: FDA-Public Use
  Company Number: 644567

PATIENT
  Age: 2 Year
  Sex: Male
  Weight: 15 kg

DRUGS (24)
  1. VINCRISTINE SULFATE [Suspect]
     Indication: PRODUCT USED FOR UNKNOWN INDICATION
     Dosage: 1.5 UNITS, 1 EVERY 1 DAY(S), INTRAVENOUS
     Route: 042
  2. ALLOPURINOL [Concomitant]
  3. ACTIVASE [Concomitant]
  4. AMOXICILLIN [Concomitant]
  5. (CEFEPROZIL) [Concomitant]
  6. CYTARABINE [Concomitant]
  7. (DEXAMETHASONE) [Concomitant]
  8. DOXORUBICIN HCL FOR INJECTION, USP (DOXORUBICIN HYDROCHLORIDE) [Concomitant]
  9. (HYDROCORTISONE) [Concomitant]
  10. ELSPAR [Concomitant]
  11. LEUCOVORIN CALCIUM [Concomitant]
  12. MERCAPTOPURINE [Concomitant]
  13. METHOTREXATE [Concomitant]
  14. (METHYLPREDNISOLONE) [Concomitant]
  15. NIFEDIPINE [Concomitant]
  16. PENTAMIDINE ISETIONATE (PENTAMIDINE ISETHIONATE) [Concomitant]
  17. PHYTONADIONE [Concomitant]
  18. POLYETHYLENE GLYCOL [Concomitant]
  19. POTASSIUM CHL (POTASSIUM CHLORIDE) [Concomitant]
  20. (PREDNISONE) [Concomitant]
  21. SULFAMETHOXAZOLE AND TRIMETHOPRIM [Concomitant]
  22. (TIMENTIN /00703201/) [Concomitant]
  23. TOBRAMYCIN [Concomitant]
  24. STERILE VANCOMYCIN HYDROCHLORIDE (VANCOMYCIN HYDROCHLORIDE) [Concomitant]

REACTIONS (1)
  - NEUROPATHY PERIPHERAL [None]
